FAERS Safety Report 8862731 (Version 1)
Quarter: 2012Q4

REPORT INFORMATION
  Report Type: 
  Country: US (occurrence: US)
  Receive Date: 20121026
  Receipt Date: 20121026
  Transmission Date: 20130627
  Serious: Yes (Other)
  Sender: FDA-Public Use
  Company Number: PHEH2012US020617

PATIENT
  Sex: Female

DRUGS (5)
  1. AMTURNIDE [Suspect]
     Indication: HYPERTENSION
     Dosage: 300 mg, daily
     Route: 048
  2. SYNTHROID [Concomitant]
     Indication: THYROID DISORDER
  3. VITOREN [Concomitant]
     Indication: BLOOD CHOLESTEROL
  4. MULTIVITAMINS [Concomitant]
  5. OMEGA 3 [Concomitant]

REACTIONS (6)
  - Vascular injury [Unknown]
  - Rash generalised [Unknown]
  - Heart rate increased [Unknown]
  - Oedema peripheral [Unknown]
  - Skin discolouration [Unknown]
  - Pain [Unknown]
